FAERS Safety Report 12501732 (Version 1)
Quarter: 2016Q2

REPORT INFORMATION
  Report Type: Spontaneous
  Country: FI (occurrence: FI)
  Receive Date: 20160627
  Receipt Date: 20160627
  Transmission Date: 20160815
  Serious: Yes (Death)
  Sender: FDA-Public Use
  Company Number: FI-ASTELLAS-2014US007758

PATIENT
  Age: 48 Year
  Sex: Male

DRUGS (9)
  1. BAL8557 [Suspect]
     Active Substance: ISAVUCONAZOLE
     Dosage: 200 MG, UNK
     Route: 065
     Dates: start: 20140627
  2. BAL8557 [Suspect]
     Active Substance: ISAVUCONAZOLE
     Dosage: 200 MG, X3
     Route: 065
     Dates: start: 20140626
  3. VORICONAZOLE. [Concomitant]
     Active Substance: VORICONAZOLE
     Indication: ANTIFUNGAL TREATMENT
     Dosage: UNK UNK, UNKNOWN FREQ.
     Route: 065
     Dates: end: 20140625
  4. BAL8557 [Suspect]
     Active Substance: ISAVUCONAZOLE
     Indication: ANTIFUNGAL TREATMENT
     Dosage: 200 MG X3 VIA NASOGASTRIC TUBE
     Route: 050
     Dates: start: 20140625, end: 201406
  5. VORICONAZOLE. [Concomitant]
     Active Substance: VORICONAZOLE
     Dosage: 200 MG, X2
     Dates: start: 20140622
  6. AMPHOTERICIN B, LIPOSOME [Concomitant]
     Active Substance: AMPHOTERICIN B
     Dosage: UNK, UNKNOWN FREQ.
     Route: 065
     Dates: start: 20140623, end: 20140625
  7. AMPHOTERICIN B, LIPOSOME [Concomitant]
     Active Substance: AMPHOTERICIN B
     Indication: PRODUCT USED FOR UNKNOWN INDICATION
     Dosage: UNK UNK, UNKNOWN FREQ.
     Route: 065
     Dates: start: 20140623, end: 20140625
  8. PREDNISOLONE. [Concomitant]
     Active Substance: PREDNISOLONE
     Indication: WOUND COMPLICATION
     Route: 048
  9. POSACONAZOLE [Concomitant]
     Active Substance: POSACONAZOLE
     Indication: ANTIFUNGAL TREATMENT
     Dosage: UNK UNK, UNKNOWN FREQ.
     Route: 065

REACTIONS (2)
  - Incorrect route of drug administration [Unknown]
  - Brain death [Fatal]

NARRATIVE: CASE EVENT DATE: 20140627
